FAERS Safety Report 11544317 (Version 1)
Quarter: 2015Q3

REPORT INFORMATION
  Report Type: Spontaneous
  Country: US (occurrence: US)
  Receive Date: 20150924
  Receipt Date: 20150924
  Transmission Date: 20151125
  Serious: No
  Sender: FDA-Public Use
  Company Number: US-ASTRAZENECA-2015SE88885

PATIENT
  Sex: Female
  Weight: 117 kg

DRUGS (3)
  1. WATER PILL [Concomitant]
     Active Substance: UNSPECIFIED INGREDIENT
  2. XIGDUO XR [Suspect]
     Active Substance: DAPAGLIFLOZIN PROPANEDIOL\METFORMIN HYDROCHLORIDE
     Indication: TYPE 2 DIABETES MELLITUS
     Route: 048
  3. CELEBREX [Concomitant]
     Active Substance: CELECOXIB
     Dosage: AS REQUIRED

REACTIONS (5)
  - Asthenia [Unknown]
  - Dehydration [Unknown]
  - Vulvovaginal mycotic infection [Unknown]
  - Hyperhidrosis [Unknown]
  - Decreased appetite [Unknown]
